FAERS Safety Report 10070397 (Version 1)
Quarter: 2014Q2

REPORT INFORMATION
  Report Type: Spontaneous
  Country: US (occurrence: US)
  Receive Date: 20140410
  Receipt Date: 20140410
  Transmission Date: 20141212
  Serious: No
  Sender: FDA-Public Use
  Company Number: US-B.I. PHARMACEUTICALS,INC./RIDGEFIELD-2014-BI-13892BP

PATIENT
  Age: 57 Year
  Sex: Female
  Weight: 56 kg

DRUGS (5)
  1. COMBIVENT [Suspect]
     Indication: CHRONIC OBSTRUCTIVE PULMONARY DISEASE
     Dosage: STRENGTH: 20 MCG / 100 MCG; DAILY DOSE: 80 MCG/400 MCG
     Route: 055
     Dates: start: 2013, end: 201401
  2. COMBIVENT [Suspect]
     Dosage: STRENGTH: 20 MCG / 100 MCG; DAILY DOSE: 160 MCG/800 MCG
     Route: 055
     Dates: start: 201401
  3. ZETIA [Concomitant]
     Indication: BLOOD CHOLESTEROL INCREASED
     Dosage: 10 MG
     Route: 048
  4. CALCIUM [Concomitant]
     Indication: SUPPLEMENTATION THERAPY
     Dosage: 1 ANZ
     Route: 048
  5. MULTIVITAMIN [Concomitant]
     Indication: SUPPLEMENTATION THERAPY
     Dosage: 1 ANZ
     Route: 048

REACTIONS (2)
  - Dyspnoea [Not Recovered/Not Resolved]
  - Prescribed overdose [Not Recovered/Not Resolved]
